FAERS Safety Report 7888014-0 (Version None)
Quarter: 2011Q4

REPORT INFORMATION
  Report Type: 
  Country: None (occurrence: None)
  Receive Date: 20111103
  Receipt Date: 20111026
  Transmission Date: 20120403
  Serious: Yes (Hospitalization)
  Sender: FDA-Public Use
  Company Number: JP-JNJFOC-20110706296

PATIENT
  Sex: Male
  Weight: 41 kg

DRUGS (2)
  1. REMICADE [Suspect]
     Indication: CROHN'S DISEASE
     Dosage: FIRST DOSE
     Route: 042
     Dates: start: 20090310
  2. REMICADE [Suspect]
     Route: 042

REACTIONS (1)
  - MYCOBACTERIAL INFECTION [None]
